FAERS Safety Report 9714182 (Version 3)
Quarter: 2015Q3

REPORT INFORMATION
  Report Type: Spontaneous
  Country: US (occurrence: US)
  Receive Date: 20131126
  Receipt Date: 20150803
  Transmission Date: 20151125
  Serious: No
  Sender: FDA-Public Use
  Company Number: US-GILEAD-2008-0018432

PATIENT
  Age: 74 Year
  Sex: Female
  Weight: 69.85 kg

DRUGS (10)
  1. LETAIRIS [Suspect]
     Active Substance: AMBRISENTAN
     Indication: PULMONARY ARTERIAL HYPERTENSION
     Dates: start: 20080912
  2. NORVASC [Concomitant]
     Active Substance: AMLODIPINE BESYLATE
  3. COZAAR [Concomitant]
     Active Substance: LOSARTAN POTASSIUM
  4. GLYBURIDE. [Concomitant]
     Active Substance: GLYBURIDE
  5. OMEPRAZOLE. [Concomitant]
     Active Substance: OMEPRAZOLE
  6. K-DUR [Concomitant]
     Active Substance: POTASSIUM CHLORIDE
  7. IRON [Concomitant]
     Active Substance: IRON
  8. NIACIN. [Concomitant]
     Active Substance: NIACIN
  9. DIGOXIN. [Concomitant]
     Active Substance: DIGOXIN
  10. LASIX [Concomitant]
     Active Substance: FUROSEMIDE

REACTIONS (2)
  - Weight increased [None]
  - Peripheral swelling [None]
